FAERS Safety Report 14464350 (Version 2)
Quarter: 2018Q1

REPORT INFORMATION
  Report Type: Spontaneous
  Country: US (occurrence: US)
  Receive Date: 20180130
  Receipt Date: 20180214
  Transmission Date: 20180509
  Serious: Yes (Hospitalization, Other)
  Sender: FDA-Public Use
  Company Number: US-GLAXOSMITHKLINE-US2018015558

PATIENT
  Sex: Male

DRUGS (8)
  1. ANORO ELLIPTA [Suspect]
     Active Substance: UMECLIDINIUM BROMIDE\VILANTEROL TRIFENATATE
     Indication: ASTHMA
     Dosage: 1 PUFF(S), QD
     Route: 055
  2. XARELTO [Suspect]
     Active Substance: RIVAROXABAN
     Indication: THROMBOSIS
     Dosage: UNK UNK, U
  3. PREDNISONE. [Concomitant]
     Active Substance: PREDNISONE
  4. THEOPHYLLINE [Concomitant]
     Active Substance: THEOPHYLLINE ANHYDROUS
  5. ADVAIR DISKUS [Suspect]
     Active Substance: FLUTICASONE PROPIONATE\SALMETEROL XINAFOATE
     Indication: ASTHMA
     Dosage: 2 PUFF(S), BID
     Route: 055
  6. BREO ELLIPTA [Suspect]
     Active Substance: FLUTICASONE FUROATE\VILANTEROL TRIFENATATE
     Indication: ASTHMA
     Dosage: 1 PUFF(S), QD
     Route: 055
  7. RANEXA [Concomitant]
     Active Substance: RANOLAZINE
  8. PANTOPRAZOLE [Concomitant]
     Active Substance: PANTOPRAZOLE

REACTIONS (12)
  - Drug effect incomplete [Unknown]
  - Drug dose omission [Unknown]
  - Contusion [Unknown]
  - Inability to afford medication [Unknown]
  - Overdose [Unknown]
  - Loss of employment [Unknown]
  - Drug ineffective [Unknown]
  - Drug effect decreased [Unknown]
  - Thrombosis [Unknown]
  - Off label use [Unknown]
  - Dyspnoea [Unknown]
  - Nasal polyps [Not Recovered/Not Resolved]
